FAERS Safety Report 9788104 (Version 1)
Quarter: 2013Q4

REPORT INFORMATION
  Report Type: Spontaneous
  Country: US (occurrence: None)
  Receive Date: 20131227
  Receipt Date: 20131227
  Transmission Date: 20140711
  Serious: Yes (Hospitalization)
  Sender: FDA-Public Use
  Company Number: None

PATIENT
  Age: 78 Year
  Sex: Female
  Weight: 86 kg

DRUGS (17)
  1. XARELTO [Suspect]
     Indication: ATRIAL FLUTTER
     Dosage: QPM
     Route: 048
  2. PLAVIX [Suspect]
     Indication: ATRIAL FIBRILLATION
     Route: 048
  3. CILOSTAZOL [Suspect]
     Indication: CORONARY ARTERY DISEASE
     Route: 048
  4. ASPIRIN [Suspect]
     Indication: CORONARY ARTERY DISEASE
     Route: 048
  5. APAP [Concomitant]
  6. AMBIEN [Concomitant]
  7. HUMALOG [Concomitant]
  8. PROTONIX [Concomitant]
  9. DILTIAZEM [Concomitant]
  10. KCL [Concomitant]
  11. LASIX [Concomitant]
  12. RANEXA [Concomitant]
  13. NTG [Concomitant]
  14. COLACE [Concomitant]
  15. FLUOXETINE [Concomitant]
  16. SIMVASTATIN [Concomitant]
  17. COREG [Concomitant]

REACTIONS (7)
  - Upper gastrointestinal haemorrhage [None]
  - Anaemia [None]
  - International normalised ratio increased [None]
  - Small intestinal haemorrhage [None]
  - Haemorrhagic arteriovenous malformation [None]
  - Dieulafoy^s vascular malformation [None]
  - Refusal of treatment by patient [None]
